FAERS Safety Report 14051745 (Version 3)
Quarter: 2017Q4

REPORT INFORMATION
  Report Type: Spontaneous
  Country: US (occurrence: US)
  Receive Date: 20171006
  Receipt Date: 20171010
  Transmission Date: 20180321
  Serious: No
  Sender: FDA-Public Use
  Company Number: US-BIOGEN-2017BI00464571

PATIENT
  Sex: Female

DRUGS (1)
  1. TYSABRI [Suspect]
     Active Substance: NATALIZUMAB
     Indication: MULTIPLE SCLEROSIS
     Route: 065
     Dates: start: 20140611

REACTIONS (6)
  - Gait disturbance [Not Recovered/Not Resolved]
  - Stress [Recovered/Resolved]
  - Prescribed underdose [Unknown]
  - Multiple sclerosis [Not Recovered/Not Resolved]
  - Therapeutic response shortened [Recovered/Resolved]
  - Asthenia [Not Recovered/Not Resolved]
